FAERS Safety Report 10048471 (Version 1)
Quarter: 2014Q1

REPORT INFORMATION
  Report Type: Spontaneous
  Country: GB (occurrence: GB)
  Receive Date: 20140331
  Receipt Date: 20140331
  Transmission Date: 20141002
  Serious: Yes (Other)
  Sender: FDA-Public Use
  Company Number: GB-VERTEX PHARMACEUTICALS INC-2014-001675

PATIENT
  Sex: 0

DRUGS (4)
  1. INCIVO [Suspect]
     Indication: PRODUCT USED FOR UNKNOWN INDICATION
     Dosage: 1125 DF, BID
     Route: 048
     Dates: start: 20140205, end: 20140227
  2. RIBAVIRIN [Concomitant]
     Indication: HEPATITIS C
     Dosage: 600 DF, BID
     Route: 048
     Dates: start: 20140205
  3. PEGYLATED INTERFERON [Concomitant]
     Indication: HEPATITIS C
     Dosage: 150 DF, QW
     Route: 058
     Dates: start: 20140205
  4. PREDNISOLONE [Concomitant]
     Indication: VASCULITIS
     Dosage: 10 DF, UNK
     Route: 048

REACTIONS (1)
  - Electrocardiogram QT prolonged [Recovered/Resolved]
